FAERS Safety Report 15951655 (Version 2)
Quarter: 2020Q1

REPORT INFORMATION
  Report Type: Spontaneous
  Country: US (occurrence: US)
  Receive Date: 20190211
  Receipt Date: 20200316
  Transmission Date: 20200409
  Serious: Yes (Other)
  Sender: FDA-Public Use
  Company Number: US-PFIZER INC-2019051083

PATIENT
  Age: 77 Year
  Sex: Female

DRUGS (4)
  1. XELJANZ [Suspect]
     Active Substance: TOFACITINIB CITRATE
     Dosage: 5 MG, UNK (1-5MG TABLET )
     Dates: start: 20200307
  2. XELJANZ [Suspect]
     Active Substance: TOFACITINIB CITRATE
     Dosage: 10 MG, UNK  (2- 5MG TABLET )
  3. XELJANZ [Suspect]
     Active Substance: TOFACITINIB CITRATE
     Indication: RHEUMATOID ARTHRITIS
     Dosage: 5 MG, 2X/DAY (ONE IN THE MORNING AND ONE IN THE EVENING)
     Route: 048
  4. PRAVASTATIN. [Concomitant]
     Active Substance: PRAVASTATIN
     Indication: BLOOD CHOLESTEROL INCREASED
     Dosage: UNK

REACTIONS (11)
  - Glaucoma [Unknown]
  - Cataract [Unknown]
  - Retinal disorder [Unknown]
  - Pain in extremity [Unknown]
  - Pain [Unknown]
  - Blindness [Unknown]
  - Intentional product use issue [Unknown]
  - Gait disturbance [Unknown]
  - Arthralgia [Unknown]
  - Musculoskeletal pain [Unknown]
  - Insomnia [Unknown]

NARRATIVE: CASE EVENT DATE: 2018
